FAERS Safety Report 4492065-6 (Version None)
Quarter: 2004Q4

REPORT INFORMATION
  Report Type: 
  Country: None (occurrence: None)
  Receive Date: 20041029
  Receipt Date: 20041019
  Transmission Date: 20050328
  Serious: Yes (Death, Other)
  Sender: FDA-Public Use
  Company Number: 2004-BP-10071MX

PATIENT
  Age: 84 Year
  Sex: Male

DRUGS (3)
  1. MOBIC [Suspect]
     Indication: RHEUMATOID ARTHRITIS
     Dosage: 15 MG (15 MG, 1 SU O.D.)
     Route: 048
     Dates: start: 20040307, end: 20040409
  2. SPIRIVA [Concomitant]
  3. LNTUS (INSULIN GLARGINE) [Concomitant]

REACTIONS (1)
  - DEATH [None]
